FAERS Safety Report 9472055 (Version 1)
Quarter: 2013Q3

REPORT INFORMATION
  Report Type: Spontaneous
  Country: US (occurrence: US)
  Receive Date: 20130823
  Receipt Date: 20130823
  Transmission Date: 20140515
  Serious: No
  Sender: FDA-Public Use
  Company Number: US-BIOGENIDEC-2013BI077412

PATIENT
  Sex: Female

DRUGS (1)
  1. AVONEX [Suspect]
     Indication: MULTIPLE SCLEROSIS
     Route: 030
     Dates: start: 20090504, end: 20120214

REACTIONS (6)
  - Hepatic enzyme decreased [Unknown]
  - Blood test abnormal [Unknown]
  - Tremor [Unknown]
  - Multiple sclerosis relapse [Unknown]
  - Hyperhidrosis [Unknown]
  - Feeling hot [Unknown]
